FAERS Safety Report 10926558 (Version 1)
Quarter: 2015Q1

REPORT INFORMATION
  Report Type: Spontaneous
  Country: US (occurrence: US)
  Receive Date: 20150318
  Receipt Date: 20150318
  Transmission Date: 20150721
  Serious: No
  Sender: FDA-Public Use
  Company Number: US-BAYER-2015-048039

PATIENT
  Age: 67 Year
  Sex: Female
  Weight: 57 kg

DRUGS (4)
  1. ALEVE [Suspect]
     Active Substance: NAPROXEN SODIUM
     Indication: ANALGESIC THERAPY
     Dosage: 2 DF, BID
     Route: 048
     Dates: start: 20150306, end: 20150309
  2. CRESTOR [Concomitant]
     Active Substance: ROSUVASTATIN CALCIUM
  3. ALEVE [Suspect]
     Active Substance: NAPROXEN SODIUM
     Indication: ANALGESIC THERAPY
     Dosage: 2 DF, QD
     Route: 048
     Dates: start: 20150310, end: 20150310
  4. LISINOPRIL. [Concomitant]
     Active Substance: LISINOPRIL

REACTIONS (2)
  - Extra dose administered [None]
  - Dry mouth [Recovered/Resolved]

NARRATIVE: CASE EVENT DATE: 20150306
